FAERS Safety Report 24036374 (Version 3)
Quarter: 2024Q3

REPORT INFORMATION
  Report Type: Spontaneous
  Country: GB (occurrence: GB)
  Receive Date: 20240701
  Receipt Date: 20240808
  Transmission Date: 20241016
  Serious: Yes (Hospitalization, Other)
  Sender: MYLAN
  Company Number: GB-MYLANLABS-2024M1061261

PATIENT
  Age: 40 Year
  Sex: Male

DRUGS (1)
  1. CLOZARIL [Suspect]
     Active Substance: CLOZAPINE
     Indication: Schizophrenia
     Dosage: 500 MILLIGRAM, QD (150 MILLIGRAM MORNING AND 350 MILLIGRAM NIGHT)
     Route: 048
     Dates: start: 20190114, end: 20240604

REACTIONS (2)
  - Hospitalisation [Unknown]
  - Mental impairment [Unknown]

NARRATIVE: CASE EVENT DATE: 20240521
